FAERS Safety Report 5472560-3 (Version None)
Quarter: 2007Q3

REPORT INFORMATION
  Report Type: 
  Country: None (occurrence: None)
  Receive Date: 20070927
  Receipt Date: 20070913
  Transmission Date: 20080115
  Serious: Yes (Life-Threatening, Hospitalization, Other)
  Sender: FDA-Public Use
  Company Number: 2007RR-07945

PATIENT
  Sex: Male

DRUGS (3)
  1. FLECAINIDE ACETATE [Suspect]
     Indication: TACHYCARDIA
     Dosage: 100 MG, BID, INTRAVENOUS
     Route: 042
  2. BENDROFLUMETHIAZIDE (BENDROFLUAZIDE) UNKNOWN [Suspect]
     Indication: HYPERTENSION
     Dosage: 2.5 MG, QD, INTRAVENOUS
     Route: 042
  3. FELODIPINE [Concomitant]

REACTIONS (9)
  - ASTHENIA [None]
  - CARDIOTOXICITY [None]
  - DRUG INTERACTION [None]
  - DRUG TOXICITY [None]
  - ELECTROCARDIOGRAM QRS COMPLEX PROLONGED [None]
  - FATIGUE [None]
  - HYPOKALAEMIA [None]
  - HYPONATRAEMIA [None]
  - SYNCOPE [None]
